FAERS Safety Report 9636703 (Version 2)
Quarter: 2014Q1

REPORT INFORMATION
  Report Type: Spontaneous
  Country: FR (occurrence: FR)
  Receive Date: 20131021
  Receipt Date: 20140315
  Transmission Date: 20141002
  Serious: Yes (Death, Hospitalization)
  Sender: FDA-Public Use
  Company Number: FR-ROCHE-1290668

PATIENT
  Age: 80 Year
  Sex: Male

DRUGS (2)
  1. ROCEPHINE [Suspect]
     Indication: OSTEITIS
     Route: 065
  2. TAVANIC [Suspect]
     Indication: OSTEITIS
     Route: 065

REACTIONS (3)
  - Confusional state [Fatal]
  - Altered state of consciousness [Fatal]
  - Radiculopathy [Unknown]
